FAERS Safety Report 9827762 (Version 1)
Quarter: 2013Q4

REPORT INFORMATION
  Report Type: Spontaneous
  Country: US (occurrence: None)
  Receive Date: 20131120
  Receipt Date: 20131120
  Transmission Date: 20140711
  Serious: Yes (Other)
  Sender: FDA-Public Use
  Company Number: 1000049984

PATIENT
  Age: 45 Year
  Sex: Female

DRUGS (3)
  1. VIIBRYD [Suspect]
     Indication: DEPRESSION
     Dates: start: 20131001, end: 20131004
  2. VIIBRYD [Suspect]
     Indication: ANXIETY
     Dates: start: 20131001, end: 20131004
  3. SPIRONOLACTONE (SPIRONOLACTONE) (SPIRONOLACTONE [Concomitant]

REACTIONS (2)
  - Insomnia [None]
  - Nausea [None]
